FAERS Safety Report 4531226-4 (Version None)
Quarter: 2004Q4

REPORT INFORMATION
  Report Type: 
  Country: None (occurrence: None)
  Receive Date: 20041206
  Receipt Date: 20040908
  Transmission Date: 20050328
  Serious: No
  Sender: FDA-Public Use
  Company Number: US_0409105510

PATIENT
  Age: 23 Year
  Sex: Female
  Weight: 72 kg

DRUGS (3)
  1. CYMBALTA [Suspect]
     Indication: STRESS SYMPTOMS
     Dosage: 30 MG
     Dates: start: 20040902
  2. ORTHO TRI-CYCLEN [Concomitant]
  3. VITAMINS NOS [Concomitant]

REACTIONS (3)
  - FATIGUE [None]
  - NAUSEA [None]
  - SOMNOLENCE [None]
